FAERS Safety Report 18326663 (Version 1)
Quarter: 2020Q3

REPORT INFORMATION
  Report Type: Spontaneous
  Country: DE (occurrence: DE)
  Receive Date: 20200929
  Receipt Date: 20200929
  Transmission Date: 20201103
  Serious: Yes (Hospitalization)
  Sender: FDA-Public Use
  Company Number: DE-MYLANLABS-2020M1082060

PATIENT
  Age: 73 Year
  Sex: Male
  Weight: 69 kg

DRUGS (14)
  1. OXALIPLATIN. [Suspect]
     Active Substance: OXALIPLATIN
     Indication: PRODUCT USED FOR UNKNOWN INDICATION
     Dosage: LETZTE 29062020
  2. FENTANYL. [Concomitant]
     Active Substance: FENTANYL
     Dosage: 0.025 MG/H, ALLE 3 TAGE, PFLASTER TRANSDERMAL
     Route: 062
  3. PANTOPRAZOL                        /01263201/ [Concomitant]
     Active Substance: PANTOPRAZOLE
     Dosage: 40 MILLIGRAM, QD, 1?0?0?0, TABLETTEN
     Route: 048
  4. INSULIN GLARGINE [Concomitant]
     Active Substance: INSULIN GLARGINE
     Dosage: 4 INTERNATIONAL UNIT, QD, 0?0?1?0, AMPULLEN
     Route: 058
  5. AMLODIPIN                          /00972401/ [Concomitant]
     Active Substance: AMLODIPINE BESYLATE
     Dosage: 5 MILLIGRAM, QD, 1?0?0?0, TABLETTEN
     Route: 048
  6. SIMVASTATIN. [Concomitant]
     Active Substance: SIMVASTATIN
     Dosage: 20 MILLIGRAM, QD, 1?0?0?0, TABLETTEN
     Route: 048
  7. ACETYLSALICYLIC ACID [Suspect]
     Active Substance: ASPIRIN
     Indication: PRODUCT USED FOR UNKNOWN INDICATION
     Dosage: 100 MILLIGRAM, QD, 1?0?0?0, TABLETTEN
     Route: 048
  8. TAMSULOSIN [Concomitant]
     Active Substance: TAMSULOSIN
     Dosage: 0.4 MILLIGRAM, QD, 0?0?1?0, KAPSELN
     Route: 048
  9. IRINOTECAN [Suspect]
     Active Substance: IRINOTECAN
     Indication: PRODUCT USED FOR UNKNOWN INDICATION
     Dosage: NK MG, LETZTE 29062020
  10. SITAGLIPTIN [Concomitant]
     Active Substance: SITAGLIPTIN
     Dosage: 100 MILLIGRAM, QD, 1?0?0?0, TABLETTEN
     Route: 048
  11. INSULIN GLULISINE [Concomitant]
     Active Substance: INSULIN GLULISINE
     Dosage: NK IE, NACH SCHEMA, AMPULLEN
     Route: 058
  12. HYDROCHLOROTHIAZIDE W/RAMIPRIL [Concomitant]
     Active Substance: HYDROCHLOROTHIAZIDE\RAMIPRIL
     Dosage: 5/25 MG, QD, 1?0?0?0, TABLETTEN
     Route: 048
  13. NALOXONE W/OXYCODONE [Concomitant]
     Active Substance: NALOXONE HYDROCHLORIDE\OXYCODONE HYDROCHLORIDE
     Dosage: 5/10 MG, BID, 1?0?1?0, RETARD?TABLETTEN
     Route: 048
  14. METAMIZOL                          /06276701/ [Concomitant]
     Active Substance: METAMIZOLE
     Dosage: 500 MILLIGRAM, 2?2?2?2, TABLETTEN
     Route: 048

REACTIONS (7)
  - Vomiting [Unknown]
  - Abdominal pain [Unknown]
  - Abdominal distension [Unknown]
  - Haematemesis [Unknown]
  - Mucosal haemorrhage [Unknown]
  - Abdominal pain upper [Unknown]
  - Nausea [Unknown]
